FAERS Safety Report 18187977 (Version 1)
Quarter: 2020Q3

REPORT INFORMATION
  Report Type: Report from Study
  Country: FR (occurrence: FR)
  Receive Date: 20200824
  Receipt Date: 20200824
  Transmission Date: 20201103
  Serious: Yes (Hospitalization)
  Sender: FDA-Public Use
  Company Number: FR-ACTELION-A-CH2019-192136

PATIENT
  Age: 72 Year
  Sex: Female
  Weight: 47 kg

DRUGS (6)
  1. UPTRAVI [Suspect]
     Active Substance: SELEXIPAG
     Dosage: 600 MCG, BID
     Route: 048
     Dates: start: 20190711
  2. TADALAFIL. [Concomitant]
     Active Substance: TADALAFIL
     Indication: PULMONARY ARTERIAL HYPERTENSION
  3. UPTRAVI [Suspect]
     Active Substance: SELEXIPAG
     Dosage: 200 MCG, BID
     Route: 048
     Dates: start: 20190606
  4. BOSENTAN. [Concomitant]
     Active Substance: BOSENTAN
     Indication: PULMONARY ARTERIAL HYPERTENSION
  5. UPTRAVI [Suspect]
     Active Substance: SELEXIPAG
     Dosage: 400 MCG, BID
     Route: 048
     Dates: start: 20190712
  6. UPTRAVI [Suspect]
     Active Substance: SELEXIPAG
     Indication: PULMONARY ARTERIAL HYPERTENSION
     Dosage: 400 MCG, BID
     Route: 048
     Dates: start: 20190613

REACTIONS (20)
  - Hernia [Unknown]
  - Diarrhoea [Not Recovered/Not Resolved]
  - Dyspnoea [Not Recovered/Not Resolved]
  - Paraesthesia [Unknown]
  - Cardiac failure [Recovered/Resolved]
  - Myalgia [Recovered/Resolved]
  - Sleep disorder [Not Recovered/Not Resolved]
  - Nerve compression [Unknown]
  - Nausea [Recovered/Resolved]
  - Fatigue [Not Recovered/Not Resolved]
  - Fluid retention [Unknown]
  - Tachycardia [Recovered/Resolved]
  - Headache [Recovered/Resolved]
  - Depressed mood [Not Recovered/Not Resolved]
  - Oxygen saturation decreased [Recovered/Resolved]
  - Constipation [Not Recovered/Not Resolved]
  - Palpitations [Recovered/Resolved]
  - Groin pain [Unknown]
  - Abdominal pain [Not Recovered/Not Resolved]
  - Anger [Not Recovered/Not Resolved]

NARRATIVE: CASE EVENT DATE: 20190613
